FAERS Safety Report 11592100 (Version 1)
Quarter: 2015Q4

REPORT INFORMATION
  Report Type: Spontaneous
  Country: US (occurrence: US)
  Receive Date: 20151005
  Receipt Date: 20151005
  Transmission Date: 20160304
  Serious: No
  Sender: FDA-Public Use
  Company Number: US-PFIZER INC-2015326763

PATIENT
  Age: 62 Year
  Sex: Female
  Weight: 73 kg

DRUGS (3)
  1. PREMARIN [Suspect]
     Active Substance: ESTROGENS, CONJUGATED
     Indication: HYSTERECTOMY
     Dosage: 0.6 MG, DAILY
     Route: 048
  2. PREMARIN [Suspect]
     Active Substance: ESTROGENS, CONJUGATED
     Dosage: 0.3 MG, DAILY
     Route: 048
  3. PREMARIN [Suspect]
     Active Substance: ESTROGENS, CONJUGATED
     Dosage: 0.3 MG, UNK (THREE TIMES A WEEK)
     Route: 048

REACTIONS (6)
  - Feeling hot [Unknown]
  - Myalgia [Not Recovered/Not Resolved]
  - Mood altered [Not Recovered/Not Resolved]
  - Feeling abnormal [Unknown]
  - Insomnia [Not Recovered/Not Resolved]
  - Pain [Unknown]
